FAERS Safety Report 25181566 (Version 1)
Quarter: 2025Q2

REPORT INFORMATION
  Report Type: Spontaneous
  Country: US (occurrence: US)
  Receive Date: 20250410
  Receipt Date: 20250410
  Transmission Date: 20250717
  Serious: Yes (Hospitalization, Other)
  Sender: ASTELLAS
  Company Number: US-ASTELLAS-2024-AER-019169

PATIENT
  Age: 41 Year
  Sex: Male

DRUGS (4)
  1. TACROLIMUS [Suspect]
     Active Substance: TACROLIMUS
     Indication: Renal transplant
     Dosage: EXTENDED-RELEASE
     Route: 065
  2. TACROLIMUS [Suspect]
     Active Substance: TACROLIMUS
     Route: 065
  3. MYCOPHENOLATE MOFETIL [Concomitant]
     Active Substance: MYCOPHENOLATE MOFETIL
     Indication: Renal transplant
     Route: 065
  4. immunoglobulin [Concomitant]
     Indication: Transplant rejection
     Route: 042

REACTIONS (3)
  - Thrombotic microangiopathy [Recovering/Resolving]
  - Toxicity to various agents [Recovering/Resolving]
  - Epstein-Barr virus infection [Unknown]
